FAERS Safety Report 24378009 (Version 1)
Quarter: 2024Q3

REPORT INFORMATION
  Report Type: Spontaneous
  Country: FR (occurrence: FR)
  Receive Date: 20240930
  Receipt Date: 20240930
  Transmission Date: 20241017
  Serious: Yes (Other)
  Sender: MYLAN
  Company Number: FR-MYLANLABS-2024M1086625

PATIENT
  Age: 46 Year
  Sex: Female

DRUGS (4)
  1. ISOTRETINOIN [Suspect]
     Active Substance: ISOTRETINOIN
     Indication: Lupus miliaris disseminatus faciei
     Dosage: 0.4 MILLIGRAM/KILOGRAM
     Route: 048
  2. METHOTREXATE [Suspect]
     Active Substance: METHOTREXATE
     Indication: Lupus miliaris disseminatus faciei
     Dosage: 15 MILLIGRAM, QW
     Route: 065
  3. LYMECYCLINE [Suspect]
     Active Substance: LYMECYCLINE
     Indication: Lupus miliaris disseminatus faciei
     Dosage: 300 MILLIGRAM, QD
     Route: 065
  4. DAPSONE [Suspect]
     Active Substance: DAPSONE
     Indication: Lupus miliaris disseminatus faciei
     Dosage: 100 MILLIGRAM, QD
     Route: 065

REACTIONS (2)
  - Drug ineffective for unapproved indication [Unknown]
  - Off label use [Unknown]
